FAERS Safety Report 4411446-X (Version None)
Quarter: 2004Q2

REPORT INFORMATION
  Report Type: 
  Country: None (occurrence: None)
  Receive Date: 20040630
  Receipt Date: 20040524
  Transmission Date: 20050107
  Serious: No
  Sender: FDA-Public Use
  Company Number: 04P-163-0261836-00

PATIENT
  Age: 39 Year
  Sex: Female
  Weight: 73.0291 kg

DRUGS (8)
  1. HUMIRA [Suspect]
     Indication: RHEUMATOID ARTHRITIS
     Dosage: 40 MG, 1 IN 2 WK, SUBCUTANEOUS
     Route: 058
     Dates: start: 20040316, end: 20040525
  2. PAROXETINE HYDROCHLORIDE [Concomitant]
  3. DEXTROPROPOXYPHENE [Concomitant]
  4. METHOTREXATE [Concomitant]
  5. FOLIC ACID [Concomitant]
  6. LEVOTHYROXINE SODIUM [Concomitant]
  7. JUMEL FE 1.5 [Concomitant]
  8. SENNA FRUIT [Concomitant]

REACTIONS (4)
  - HEADACHE [None]
  - HYPOAESTHESIA [None]
  - NAUSEA [None]
  - PARAESTHESIA [None]
